FAERS Safety Report 18320636 (Version 1)
Quarter: 2020Q3

REPORT INFORMATION
  Report Type: Spontaneous
  Country: US (occurrence: US)
  Receive Date: 20200928
  Receipt Date: 20200928
  Transmission Date: 20201103
  Serious: No
  Sender: FDA-Public Use
  Company Number: US-FAGRON STERILE SERVICES-2092237

PATIENT

DRUGS (1)
  1. TROPICAMIDE 1%/CYCLOPENTOLATE 1%/ PHENYLEPHRINE 10% / KETOROLAC 0.5% O [Suspect]
     Active Substance: CYCLOPENTOLATE\KETOROLAC\PHENYLEPHRINE\TROPICAMIDE
     Dates: start: 20200909, end: 20200909

REACTIONS (1)
  - Drug ineffective [Recovered/Resolved]

NARRATIVE: CASE EVENT DATE: 20200909
